FAERS Safety Report 20695201 (Version 2)
Quarter: 2022Q3

REPORT INFORMATION
  Report Type: Report from Study
  Country: MX (occurrence: MX)
  Receive Date: 20220411
  Receipt Date: 20220709
  Transmission Date: 20221026
  Serious: Yes (Death, Other)
  Sender: FDA-Public Use
  Company Number: MX-NOVARTISPH-NVSC2021MX298273

PATIENT
  Age: 62 Year
  Sex: Female
  Weight: 58 kg

DRUGS (5)
  1. MEKINIST [Suspect]
     Active Substance: TRAMETINIB DIMETHYL SULFOXIDE
     Indication: Thyroid cancer
     Dosage: 1 DOSAGE FORM, QID (0.5MG)
     Route: 048
     Dates: start: 20211202, end: 20220205
  2. MEKINIST [Suspect]
     Active Substance: TRAMETINIB DIMETHYL SULFOXIDE
     Dosage: 1 DOSAGE FORM, QID (0.5MG)
     Route: 048
     Dates: start: 20220314
  3. TAFINLAR [Suspect]
     Active Substance: DABRAFENIB MESYLATE
     Indication: Thyroid cancer
     Dosage: 1 DOSAGE FORM, QID (75MG)
     Route: 048
     Dates: start: 20211202, end: 20220205
  4. TAFINLAR [Suspect]
     Active Substance: DABRAFENIB MESYLATE
     Dosage: 1 DOSAGE FORM, QID (75MG)
     Route: 048
     Dates: start: 20220314
  5. VENLAFAXINE [Concomitant]
     Active Substance: VENLAFAXINE HYDROCHLORIDE
     Indication: Generalised anxiety disorder
     Dosage: 1 DOSAGE FORM, QD (75MG)
     Route: 048
     Dates: start: 2001

REACTIONS (13)
  - Death [Fatal]
  - Pyrexia [Not Recovered/Not Resolved]
  - Inappropriate schedule of product administration [Unknown]
  - Oropharyngeal pain [Recovering/Resolving]
  - Aphasia [Recovering/Resolving]
  - Feeding disorder [Recovering/Resolving]
  - Cough [Recovering/Resolving]
  - Nasopharyngitis [Recovered/Resolved with Sequelae]
  - Nasal congestion [Unknown]
  - Alopecia [Not Recovered/Not Resolved]
  - Pain [Unknown]
  - Musculoskeletal discomfort [Recovering/Resolving]
  - Acanthosis nigricans [Unknown]

NARRATIVE: CASE EVENT DATE: 20211202
